FAERS Safety Report 4469295-2 (Version None)
Quarter: 2004Q4

REPORT INFORMATION
  Report Type: 
  Country: None (occurrence: None)
  Receive Date: 20041008
  Receipt Date: 20030924
  Transmission Date: 20050328
  Serious: No
  Sender: FDA-Public Use
  Company Number: US-BRISTOL-MYERS SQUIBB COMPANY-12393351

PATIENT
  Age: 67 Year
  Sex: Female
  Weight: 91 kg

DRUGS (6)
  1. AVAPRO [Suspect]
     Indication: HYPERTENSION
     Route: 048
     Dates: start: 20030701
  2. HYDROCHLOROTHIAZIDE [Concomitant]
  3. INDERAL [Concomitant]
  4. PRAVACHOL [Concomitant]
  5. TRI-CHLOR [Concomitant]
  6. MULTIVITAMIN [Concomitant]

REACTIONS (1)
  - BLOOD PRESSURE INCREASED [None]
